FAERS Safety Report 18415913 (Version 3)
Quarter: 2021Q2

REPORT INFORMATION
  Report Type: Spontaneous
  Country: CA (occurrence: CA)
  Receive Date: 20201022
  Receipt Date: 20210615
  Transmission Date: 20210717
  Serious: Yes (Other)
  Sender: FDA-Public Use
  Company Number: CA-SAMSUNG BIOEPIS-SB-2020-32386

PATIENT
  Age: 19 Year
  Sex: Female
  Weight: 87 kg

DRUGS (5)
  1. INFLIXIMAB [Suspect]
     Active Substance: INFLIXIMAB
     Indication: COLITIS ULCERATIVE
     Route: 042
  2. MESALAZINE [Concomitant]
     Active Substance: MESALAMINE
     Indication: PRODUCT USED FOR UNKNOWN INDICATION
     Route: 065
  3. INFLIXIMAB [Suspect]
     Active Substance: INFLIXIMAB
     Route: 042
  4. BUDESONIDE. [Concomitant]
     Active Substance: BUDESONIDE
     Indication: PRODUCT USED FOR UNKNOWN INDICATION
     Dosage: UNKNOWN
     Route: 065
  5. MESALAZINE [Concomitant]
     Active Substance: MESALAMINE
     Route: 065

REACTIONS (16)
  - Chills [Unknown]
  - Contusion [Unknown]
  - Infection [Unknown]
  - Pyrexia [Unknown]
  - Weight decreased [Unknown]
  - Body temperature decreased [Unknown]
  - Intentional product use issue [Unknown]
  - Condition aggravated [Unknown]
  - Oxygen saturation decreased [Unknown]
  - Pain [Unknown]
  - Drug level above therapeutic [Unknown]
  - Malaise [Unknown]
  - Oxygen saturation abnormal [Unknown]
  - Heart rate increased [Unknown]
  - Off label use [Unknown]
  - Product use issue [Unknown]
